FAERS Safety Report 12527521 (Version 1)
Quarter: 2016Q3

REPORT INFORMATION
  Report Type: Spontaneous
  Country: US (occurrence: US)
  Receive Date: 20160705
  Receipt Date: 20160705
  Transmission Date: 20161109
  Serious: Yes (Other)
  Sender: FDA-Public Use
  Company Number: US-BAYER-2016-125664

PATIENT
  Age: 74 Year
  Sex: Male

DRUGS (2)
  1. REGORAFENIB [Suspect]
     Active Substance: REGORAFENIB
     Indication: GASTROINTESTINAL STROMAL CANCER
     Dosage: 120 MG, QD
  2. REGORAFENIB [Suspect]
     Active Substance: REGORAFENIB
     Indication: GASTROINTESTINAL STROMAL CANCER
     Dosage: 80 MG, QD

REACTIONS (7)
  - Retinal vein occlusion [None]
  - Palmar-plantar erythrodysaesthesia syndrome [None]
  - Skin exfoliation [None]
  - Hyperkeratosis [None]
  - Metastasis [None]
  - Blister [None]
  - Pain [None]
